FAERS Safety Report 24060870 (Version 1)
Quarter: 2024Q3

REPORT INFORMATION
  Report Type: Report from Study
  Country: IT (occurrence: IT)
  Receive Date: 20240708
  Receipt Date: 20240708
  Transmission Date: 20241017
  Serious: Yes (Hospitalization, Other)
  Sender: TEVA
  Company Number: None

PATIENT
  Age: 6 Year
  Sex: Male
  Weight: 24 kg

DRUGS (4)
  1. METHOTREXATE [Suspect]
     Active Substance: METHOTREXATE
     Indication: B-cell type acute leukaemia
     Dosage: 420.00 MG INFUSION IN 50 ML NACL 0.9% OVER 30 MIN. + 3795.00 MG INFUSION IN 750 ML NACL 0.9% IN 1...
     Route: 042
     Dates: start: 20240328, end: 20240328
  2. CYTARABINE [Suspect]
     Active Substance: CYTARABINE
     Indication: B-cell type acute leukaemia
     Dosage: 1685.00 MG INFUSION IN 500 ML NACL 0.9% OVER 180 MIN. X 2 TIMES/DAY
     Route: 042
     Dates: start: 20240331, end: 20240331
  3. ONCASPAR [Suspect]
     Active Substance: PEGASPARGASE
     Indication: B-cell type acute leukaemia
     Dosage: 2110.00 IU INFUSION IN 100 ML NACL 0.9% IN 120 MIN.
     Route: 042
     Dates: start: 20240402, end: 20240402
  4. CYCLOPHOSPHAMIDE [Suspect]
     Active Substance: CYCLOPHOSPHAMIDE
     Indication: B-cell type acute leukaemia
     Dosage: 168.50 MG INFUSION IN 100 ML SOL. 5% GLUCOSE IN 60 MIN. X 2 DOSES/DAY FROM 28/03 TO 30/03 (TOTAL ...
     Route: 042
     Dates: start: 20240328, end: 20240330

REACTIONS (8)
  - Febrile neutropenia [Recovered/Resolved]
  - Stomatitis [Recovered/Resolved]
  - Abdominal pain [Recovered/Resolved]
  - Thrombocytopenia [Recovered/Resolved]
  - Cancer fatigue [Recovered/Resolved]
  - Decreased appetite [Unknown]
  - Leukopenia [Recovered/Resolved]
  - Alopecia [Not Recovered/Not Resolved]

NARRATIVE: CASE EVENT DATE: 20240402
